FAERS Safety Report 12354144 (Version 1)
Quarter: 2016Q2

REPORT INFORMATION
  Report Type: Spontaneous
  Country: DE (occurrence: DE)
  Receive Date: 20160511
  Receipt Date: 20160511
  Transmission Date: 20160815
  Serious: Yes (Other)
  Sender: FDA-Public Use
  Company Number: DE-ALKEM-001635

PATIENT
  Sex: Male

DRUGS (1)
  1. QUETIAPINE/QUETIAPINE FUMARATE [Suspect]
     Active Substance: QUETIAPINE FUMARATE
     Indication: PRODUCT USED FOR UNKNOWN INDICATION

REACTIONS (6)
  - Palpitations [None]
  - Fatigue [Unknown]
  - Palpitations [Unknown]
  - Dizziness [Unknown]
  - Sudden onset of sleep [Unknown]
  - Syncope [Unknown]
